FAERS Safety Report 14093056 (Version 1)
Quarter: 2017Q4

REPORT INFORMATION
  Report Type: Spontaneous
  Country: US (occurrence: US)
  Receive Date: 20171016
  Receipt Date: 20171016
  Transmission Date: 20180321
  Serious: Yes (Death)
  Sender: FDA-Public Use
  Company Number: US-PURACAP PHARMACEUTICAL LLC-2017EPC01960

PATIENT
  Sex: Male

DRUGS (1)
  1. EQUATE NIGHTTIME SLEEP AID [Suspect]
     Active Substance: DIPHENHYDRAMINE HYDROCHLORIDE
     Dosage: UNK, ONCE
     Dates: start: 20170911

REACTIONS (1)
  - Overdose [Fatal]

NARRATIVE: CASE EVENT DATE: 20170911
